FAERS Safety Report 6474083-1 (Version None)
Quarter: 2009Q4

REPORT INFORMATION
  Report Type: 
  Country: None (occurrence: None)
  Receive Date: 20091204
  Receipt Date: 20091130
  Transmission Date: 20100525
  Serious: Yes (Death, Other)
  Sender: FDA-Public Use
  Company Number: IT-BAYER-200936093GPV

PATIENT
  Age: 80 Year
  Sex: Female

DRUGS (3)
  1. NEXAVAR [Suspect]
     Indication: HEPATIC NEOPLASM MALIGNANT
     Route: 048
     Dates: start: 20090910, end: 20090921
  2. CIPROXIN [Suspect]
     Indication: URINARY TRACT INFECTION
     Dosage: TOTAL DAILY DOSE: 1000 MG
     Route: 048
     Dates: start: 20090918, end: 20090921
  3. VIREAD [Concomitant]
     Indication: HEPATITIS B
     Route: 048
     Dates: start: 20090910, end: 20091003

REACTIONS (6)
  - ASCITES [None]
  - HEPATORENAL SYNDROME [None]
  - HEPATOTOXICITY [None]
  - PLEURAL EFFUSION [None]
  - RENAL FAILURE [None]
  - URINARY TRACT INFECTION [None]
